FAERS Safety Report 6083591-7 (Version None)
Quarter: 2009Q1

REPORT INFORMATION
  Report Type: 
  Country: None (occurrence: None)
  Receive Date: 20090219
  Receipt Date: 20090217
  Transmission Date: 20090719
  Serious: Yes (Life-Threatening, Hospitalization)
  Sender: FDA-Public Use
  Company Number: PHBS2009IN00839

PATIENT
  Age: 32 Year
  Sex: Female

DRUGS (3)
  1. OXYTOCIN [Suspect]
  2. ERGOMETRINE [Suspect]
  3. CARBOPROST [Suspect]

REACTIONS (9)
  - DISSEMINATED INTRAVASCULAR COAGULATION [None]
  - HAEMORRHAGE [None]
  - HYSTERECTOMY [None]
  - LAPAROTOMY [None]
  - MECHANICAL VENTILATION [None]
  - POSTPARTUM HAEMORRHAGE [None]
  - SPLENECTOMY [None]
  - SPLENIC ARTERY ANEURYSM [None]
  - UTERINE ATONY [None]
